FAERS Safety Report 14308412 (Version 2)
Quarter: 2018Q1

REPORT INFORMATION
  Report Type: Spontaneous
  Country: JP (occurrence: JP)
  Receive Date: 20171220
  Receipt Date: 20180131
  Transmission Date: 20180509
  Serious: Yes (Other)
  Sender: FDA-Public Use
  Company Number: PHJP2017JP036549

PATIENT
  Sex: Male

DRUGS (1)
  1. FLUORESCEIN SODIUM. [Suspect]
     Active Substance: FLUORESCEIN SODIUM
     Indication: DIABETIC RETINAL OEDEMA
     Dosage: UNK
     Route: 040

REACTIONS (1)
  - Loss of consciousness [Unknown]
